FAERS Safety Report 20378343 (Version 1)
Quarter: 2022Q1

REPORT INFORMATION
  Report Type: Spontaneous
  Country: US (occurrence: None)
  Receive Date: 20220125
  Receipt Date: 20220125
  Transmission Date: 20220423
  Serious: No
  Sender: FDA-Public Use
  Company Number: None

PATIENT
  Age: 73 Year
  Sex: Female
  Weight: 69.85 kg

DRUGS (1)
  1. TYMLOS [Suspect]
     Active Substance: ABALOPARATIDE
     Indication: Osteoporosis
     Dosage: INJECT 80MCG SUBCUTANEOUSLY DAILY AS DIRECTED?
     Route: 058
     Dates: start: 202005

REACTIONS (2)
  - Foot operation [None]
  - Systemic lupus erythematosus [None]
